FAERS Safety Report 9723083 (Version 1)
Quarter: 2013Q4

REPORT INFORMATION
  Report Type: Spontaneous
  Country: US (occurrence: None)
  Receive Date: 20131127
  Receipt Date: 20131127
  Transmission Date: 20140711
  Serious: No
  Sender: FDA-Public Use
  Company Number: None

PATIENT
  Age: 27 Year
  Sex: Female
  Weight: 150 kg

DRUGS (1)
  1. DEPO PROVERA [Suspect]

REACTIONS (12)
  - Procedural pain [None]
  - Vaginal haemorrhage [None]
  - Thrombosis [None]
  - Menorrhagia [None]
  - Alopecia [None]
  - Burning sensation [None]
  - Pruritus [None]
  - Fatigue [None]
  - Abdominal pain upper [None]
  - Dyspareunia [None]
  - Malaise [None]
  - Drug ineffective [None]
